FAERS Safety Report 18493428 (Version 10)
Quarter: 2022Q3

REPORT INFORMATION
  Report Type: Spontaneous
  Country: CA (occurrence: CA)
  Receive Date: 20201112
  Receipt Date: 20220824
  Transmission Date: 20221027
  Serious: Yes (Hospitalization)
  Sender: FDA-Public Use
  Company Number: CA-CELLTRION INC.-2020CA025324

PATIENT

DRUGS (13)
  1. INFLECTRA [Suspect]
     Active Substance: INFLIXIMAB-DYYB
     Indication: Crohn^s disease
     Dosage: 0, 2, 6 THEN EVERY 8 WEEKS
     Route: 042
     Dates: start: 20200728
  2. INFLECTRA [Suspect]
     Active Substance: INFLIXIMAB-DYYB
     Dosage: 0, 2, 6 THEN EVERY 8 WEEKS
     Route: 042
     Dates: start: 20200810
  3. INFLECTRA [Suspect]
     Active Substance: INFLIXIMAB-DYYB
     Dosage: 0, 2, 6 THEN EVERY 8 WEEKS
     Route: 042
     Dates: start: 20200909
  4. INFLECTRA [Suspect]
     Active Substance: INFLIXIMAB-DYYB
     Dosage: 0, 2, 6 THEN EVERY 8 WEEKS
     Route: 042
     Dates: start: 20201103
  5. INFLECTRA [Suspect]
     Active Substance: INFLIXIMAB-DYYB
     Dosage: 0, 2, 6 THEN EVERY 8 WEEKS
     Route: 042
     Dates: start: 20201228
  6. INFLECTRA [Suspect]
     Active Substance: INFLIXIMAB-DYYB
     Dosage: 0, 2, 6 THEN EVERY 8 WEEKS
     Route: 042
     Dates: start: 20210222
  7. INFLECTRA [Suspect]
     Active Substance: INFLIXIMAB-DYYB
     Dosage: 0, 2, 6 THEN EVERY 8 WEEKS
     Route: 042
     Dates: start: 20210508
  8. INFLECTRA [Suspect]
     Active Substance: INFLIXIMAB-DYYB
     Dosage: 0, 2, 6 THEN EVERY 8 WEEKS
     Route: 042
     Dates: start: 20210703
  9. INFLECTRA [Suspect]
     Active Substance: INFLIXIMAB-DYYB
     Dosage: 0, 2, 6 THEN EVERY 8 WEEKS
     Route: 042
     Dates: start: 20210828
  10. INFLECTRA [Suspect]
     Active Substance: INFLIXIMAB-DYYB
     Dosage: 0, 2, 6 THEN EVERY 8 WEEKS
     Route: 042
     Dates: start: 20220414
  11. INFLECTRA [Suspect]
     Active Substance: INFLIXIMAB-DYYB
     Dosage: 0, 2, 6 THEN EVERY 8 WEEKS
     Route: 042
     Dates: start: 20220610
  12. INFLECTRA [Suspect]
     Active Substance: INFLIXIMAB-DYYB
     Dosage: 0, 2, 6 THEN EVERY 8 WEEKS
     Route: 042
     Dates: start: 20220810
  13. TRAMADOL [Concomitant]
     Active Substance: TRAMADOL
     Indication: Pain
     Dosage: UNK

REACTIONS (8)
  - Food poisoning [Recovering/Resolving]
  - Off label use [Unknown]
  - Inappropriate schedule of product administration [Unknown]
  - Blood pressure diastolic decreased [Unknown]
  - Weight fluctuation [Recovered/Resolved]
  - COVID-19 [Not Recovered/Not Resolved]
  - Arthralgia [Unknown]
  - Condition aggravated [Recovering/Resolving]

NARRATIVE: CASE EVENT DATE: 20200810
